FAERS Safety Report 24527179 (Version 3)
Quarter: 2024Q4

REPORT INFORMATION
  Report Type: Spontaneous
  Country: JP (occurrence: JP)
  Receive Date: 20241021
  Receipt Date: 20241206
  Transmission Date: 20250114
  Serious: Yes (Hospitalization)
  Sender: UCB
  Company Number: JP-UCBJ-CD202409808UCBPHAPROD

PATIENT
  Age: 16 Year
  Sex: Male
  Weight: 42 kg

DRUGS (2)
  1. LEVETIRACETAM [Suspect]
     Active Substance: LEVETIRACETAM
     Indication: Epilepsy
     Dosage: 500 MILLIGRAM, 2X/DAY (BID)
     Route: 048
  2. LEVETIRACETAM [Suspect]
     Active Substance: LEVETIRACETAM
     Dosage: 250 MILLIGRAM, 2X/DAY (BID)
     Route: 048

REACTIONS (5)
  - Hallucination, auditory [Recovered/Resolved]
  - Malaise [Recovered/Resolved]
  - Irritability [Recovered/Resolved]
  - Off label use [Unknown]
  - Prescribed underdose [Unknown]
